FAERS Safety Report 21222089 (Version 1)
Quarter: 2022Q3

REPORT INFORMATION
  Report Type: Spontaneous
  Country: JP (occurrence: JP)
  Receive Date: 20220817
  Receipt Date: 20220817
  Transmission Date: 20221027
  Serious: Yes (Other)
  Sender: FDA-Public Use
  Company Number: JP-KYOWAKIRIN-2022AKK012617

PATIENT

DRUGS (5)
  1. PEGFILGRASTIM [Suspect]
     Active Substance: PEGFILGRASTIM
     Indication: Product used for unknown indication
     Dosage: UNK
     Route: 065
  2. FILGRASTIM [Suspect]
     Active Substance: FILGRASTIM
     Indication: Product used for unknown indication
     Dosage: UNK
     Route: 065
  3. FLUOROURACIL [Concomitant]
     Active Substance: FLUOROURACIL
     Indication: Oesophageal carcinoma
     Dosage: 750 MILLIGRAM/SQ. METER
     Route: 041
  4. DOCETAXEL [Concomitant]
     Active Substance: DOCETAXEL
     Indication: Oesophageal carcinoma
     Dosage: 70 MILLIGRAM/SQ. METER
     Route: 041
  5. CISPLATIN [Concomitant]
     Active Substance: CISPLATIN
     Indication: Oesophageal carcinoma
     Dosage: 70 MILLIGRAM/SQ. METER
     Route: 041

REACTIONS (1)
  - Vasculitis [Unknown]
